FAERS Safety Report 4749150-0 (Version None)
Quarter: 2005Q3

REPORT INFORMATION
  Report Type: 
  Country: None (occurrence: None)
  Receive Date: 20050817
  Receipt Date: 20050812
  Transmission Date: 20060218
  Serious: Yes (Hospitalization)
  Sender: FDA-Public Use
  Company Number: 2005FR-00228

PATIENT
  Age: 29 Year
  Sex: Male

DRUGS (1)
  1. FLUOXETINE [Suspect]
     Indication: OBSESSIVE-COMPULSIVE DISORDER
     Dosage: 20TO60MG, ORAL
     Route: 048
     Dates: start: 20050602, end: 20050630

REACTIONS (1)
  - AGGRESSION [None]
